FAERS Safety Report 9052902 (Version 1)
Quarter: 2013Q1

REPORT INFORMATION
  Report Type: Spontaneous
  Country: FR (occurrence: FR)
  Receive Date: 20130207
  Receipt Date: 20130207
  Transmission Date: 20140127
  Serious: Yes (Hospitalization)
  Sender: FDA-Public Use
  Company Number: PHHY2013FR010611

PATIENT
  Age: 61 None
  Sex: Female

DRUGS (1)
  1. IBUPROFEN [Suspect]
     Dosage: 400 MG, TID
     Route: 048
     Dates: end: 20121205

REACTIONS (11)
  - Hyperkalaemia [Unknown]
  - Renal failure acute [Unknown]
  - Asthenia [Unknown]
  - General physical health deterioration [Unknown]
  - Inflammation [None]
  - Cardiac failure [None]
  - Anaemia [None]
  - Septic shock [None]
  - Dehydration [None]
  - General physical health deterioration [None]
  - Breast cancer metastatic [None]
